FAERS Safety Report 13237898 (Version 3)
Quarter: 2017Q3

REPORT INFORMATION
  Report Type: Report from Study
  Country: None (occurrence: US)
  Receive Date: 20170216
  Receipt Date: 20170707
  Transmission Date: 20171127
  Serious: Yes (Other)
  Sender: FDA-Public Use
  Company Number: US-ABBVIE-17K-163-1870562-00

PATIENT
  Age: 44 Year
  Sex: Female

DRUGS (1)
  1. HUMIRA [Suspect]
     Active Substance: ADALIMUMAB
     Indication: PSORIATIC ARTHROPATHY
     Route: 058
     Dates: start: 2007

REACTIONS (7)
  - Blood pressure increased [Recovering/Resolving]
  - Uterine leiomyoma [Recovered/Resolved]
  - Procedural pain [Recovered/Resolved]
  - Arthralgia [Not Recovered/Not Resolved]
  - Uterine cyst [Recovering/Resolving]
  - Uterine leiomyoma [Recovered/Resolved]
  - Myositis [Recovering/Resolving]

NARRATIVE: CASE EVENT DATE: 2010
